FAERS Safety Report 12147114 (Version 1)
Quarter: 2016Q1

REPORT INFORMATION
  Report Type: Spontaneous
  Country: US (occurrence: US)
  Receive Date: 20160304
  Receipt Date: 20160304
  Transmission Date: 20160526
  Serious: Yes (Hospitalization, Other)
  Sender: FDA-Public Use
  Company Number: US-RB-046635-12

PATIENT
  Age: 0 Year
  Sex: Female

DRUGS (5)
  1. PRENATAL [Concomitant]
     Active Substance: VITAMINS
     Indication: PREGNANCY
     Dosage: DOSING DETAILS UNKNOWN
     Route: 064
     Dates: end: 20121029
  2. SUBUTEX [Suspect]
     Active Substance: BUPRENORPHINE HYDROCHLORIDE
     Indication: DRUG DEPENDENCE
     Route: 064
     Dates: start: 20120416, end: 20121029
  3. GENERIC BUPRENORPHINE [Suspect]
     Active Substance: BUPRENORPHINE
     Indication: PRODUCT USED FOR UNKNOWN INDICATION
     Dosage: UNKNOWN DOSING DETAILS
     Route: 063
  4. OXYCODONE [Suspect]
     Active Substance: OXYCODONE
     Indication: PRODUCT USED FOR UNKNOWN INDICATION
     Dosage: DOSING DETAILS UNKNOWN
     Route: 064
     Dates: end: 20121029
  5. KLONOPIN [Suspect]
     Active Substance: CLONAZEPAM
     Indication: PRODUCT USED FOR UNKNOWN INDICATION
     Dosage: DOSING DETAILS UNKNOWN
     Route: 064
     Dates: end: 20121029

REACTIONS (3)
  - Foetal exposure during pregnancy [Recovered/Resolved]
  - Drug withdrawal syndrome neonatal [Unknown]
  - Exposure during breast feeding [Not Recovered/Not Resolved]

NARRATIVE: CASE EVENT DATE: 2012
